FAERS Safety Report 17372350 (Version 3)
Quarter: 2020Q1

REPORT INFORMATION
  Report Type: Spontaneous
  Country: AU (occurrence: AU)
  Receive Date: 20200205
  Receipt Date: 20200302
  Transmission Date: 20200409
  Serious: Yes (Other)
  Sender: FDA-Public Use
  Company Number: AU-APOTEX-2020AP007180

PATIENT
  Sex: Male

DRUGS (4)
  1. APO-CITALOPRAM [Suspect]
     Active Substance: CITALOPRAM HYDROBROMIDE
     Indication: DEPRESSED MOOD
  2. APO-CITALOPRAM [Suspect]
     Active Substance: CITALOPRAM HYDROBROMIDE
     Indication: PANIC ATTACK
     Dosage: 1 DF, QD
     Route: 048
     Dates: end: 20200125
  3. BIOFORM                            /00078901/ [Concomitant]
     Indication: GASTROINTESTINAL DISORDER
     Dosage: UNK, AROUND FOUR WEEKS
     Route: 048
  4. VALIUM [Concomitant]
     Active Substance: DIAZEPAM
     Indication: PANIC ATTACK
     Dosage: UNK
     Route: 048

REACTIONS (11)
  - Insomnia [Recovered/Resolved]
  - Headache [Recovered/Resolved]
  - Diarrhoea [Recovered/Resolved]
  - Hyperhidrosis [Recovered/Resolved]
  - Panic attack [Recovered/Resolved]
  - Nausea [Recovered/Resolved]
  - Depression suicidal [Recovered/Resolved]
  - Housebound [Recovered/Resolved]
  - Dizziness [Recovered/Resolved]
  - Hot flush [Recovered/Resolved]
  - Somnolence [Recovered/Resolved]
